FAERS Safety Report 25201130 (Version 1)
Quarter: 2025Q2

REPORT INFORMATION
  Report Type: Spontaneous
  Country: CN (occurrence: CN)
  Receive Date: 20250416
  Receipt Date: 20250416
  Transmission Date: 20250717
  Serious: Yes (Other)
  Sender: BAXTER
  Company Number: None

PATIENT
  Age: 49 Year
  Sex: Female
  Weight: 70 kg

DRUGS (6)
  1. CYCLOPHOSPHAMIDE [Suspect]
     Active Substance: CYCLOPHOSPHAMIDE
     Indication: Breast cancer female
     Dosage: 0.85 G, QD, ON D1
     Route: 041
     Dates: start: 20250206, end: 20250206
  2. SODIUM CHLORIDE [Suspect]
     Active Substance: SODIUM CHLORIDE
     Indication: Medication dilution
     Dosage: 50 ML, QD, 0.9% SODIUM CHLORIDE INJECTION + CYCLOPHOSPHAMIDE, IVGTT D1
     Route: 041
     Dates: start: 20250206, end: 20250206
  3. SODIUM CHLORIDE [Suspect]
     Active Substance: SODIUM CHLORIDE
     Dosage: 250 ML, QD, 0.9% SODIUM CHLORIDE + DOCETAXEL IVGTT ON D2
     Route: 041
     Dates: start: 20250207, end: 20250207
  4. DEXTROSE [Suspect]
     Active Substance: DEXTROSE MONOHYDRATE
     Indication: Medication dilution
     Dosage: 500 ML, QD, 5% GLUCOSE, IVGTT ON D1
     Route: 041
     Dates: start: 20250206, end: 20250206
  5. DOCETAXEL [Suspect]
     Active Substance: DOCETAXEL
     Indication: Breast cancer female
     Dosage: 80 MG, QD, IVGTT ON D2
     Route: 041
     Dates: start: 20250207, end: 20250207
  6. DOXORUBICIN HYDROCHLORIDE [Suspect]
     Active Substance: DOXORUBICIN HYDROCHLORIDE
     Indication: Breast cancer female
     Dosage: 50 MG, QD, ON D1 SELF-PREPARED
     Route: 041
     Dates: start: 20250206, end: 20250206

REACTIONS (1)
  - Leukopenia [Recovered/Resolved]

NARRATIVE: CASE EVENT DATE: 20250313
